FAERS Safety Report 19596685 (Version 1)
Quarter: 2021Q3

REPORT INFORMATION
  Report Type: Spontaneous
  Country: US (occurrence: US)
  Receive Date: 20210722
  Receipt Date: 20210722
  Transmission Date: 20211014
  Serious: Yes (Other)
  Sender: FDA-Public Use
  Company Number: US-PFIZER INC-2018418551

PATIENT
  Age: 38 Year
  Sex: Male
  Weight: 83.01 kg

DRUGS (3)
  1. DILANTIN [Suspect]
     Active Substance: PHENYTOIN
     Indication: SEIZURE
     Dosage: 500 MG, DAILY, (TAKE 5 CAPSULES DAILY/5 TIMES A DAY)
     Route: 048
     Dates: start: 20120309
  2. DILANTIN [Suspect]
     Active Substance: PHENYTOIN
     Dosage: 100MG TAKES 5 CAPSULES AS NIGHT FOR SEIZURE PREVENTION
     Route: 048
  3. DILANTIN [Suspect]
     Active Substance: PHENYTOIN
     Indication: SEIZURE
     Dosage: UNK
     Route: 048

REACTIONS (1)
  - Immunodeficiency [Unknown]
